FAERS Safety Report 20648547 (Version 1)
Quarter: 2022Q1

REPORT INFORMATION
  Report Type: Spontaneous
  Country: US (occurrence: US)
  Receive Date: 20220329
  Receipt Date: 20220329
  Transmission Date: 20220423
  Serious: No
  Sender: FDA-Public Use
  Company Number: US-GALDERMA-US2022003106

PATIENT

DRUGS (2)
  1. DIFFERIN GEL [Suspect]
     Active Substance: ADAPALENE
     Indication: Acne
     Dosage: 1 DOSAGE FORM, QD
     Route: 061
     Dates: start: 20220308, end: 20220313
  2. COSMETICS [Suspect]
     Active Substance: COSMETICS
     Indication: Acne
     Dosage: 1 DOSAGE FORM, QD
     Route: 061
     Dates: start: 20220310, end: 20220313

REACTIONS (10)
  - Skin exfoliation [Recovered/Resolved]
  - Dry skin [Recovered/Resolved]
  - Skin burning sensation [Recovered/Resolved]
  - Erythema [Recovered/Resolved]
  - Skin irritation [Recovered/Resolved]
  - Periorbital irritation [Recovered/Resolved]
  - Erythema of eyelid [Recovered/Resolved]
  - Chapped lips [Recovering/Resolving]
  - Eyelid irritation [Recovered/Resolved]
  - Exposure during pregnancy [Recovered/Resolved]

NARRATIVE: CASE EVENT DATE: 20220308
